FAERS Safety Report 9337086 (Version 1)
Quarter: 2013Q2

REPORT INFORMATION
  Report Type: Report from Study
  Country: CA (occurrence: CA)
  Receive Date: 20130607
  Receipt Date: 20130607
  Transmission Date: 20140414
  Serious: Yes (Other)
  Sender: FDA-Public Use
  Company Number: CA-JNJFOC-20130601544

PATIENT
  Age: 43 Year
  Sex: Male
  Weight: 84.8 kg

DRUGS (4)
  1. REMICADE [Suspect]
     Indication: CROHN^S DISEASE
     Dosage: 69TH INFUSION
     Route: 042
  2. CODEINE [Concomitant]
     Route: 065
  3. BENTYLOL [Concomitant]
     Route: 065
  4. IMURAN [Concomitant]
     Route: 065

REACTIONS (1)
  - Rectal haemorrhage [Not Recovered/Not Resolved]
